FAERS Safety Report 18453706 (Version 1)
Quarter: 2020Q4

REPORT INFORMATION
  Report Type: Spontaneous
  Country: KR (occurrence: KR)
  Receive Date: 20201102
  Receipt Date: 20201102
  Transmission Date: 20210114
  Serious: Yes (Hospitalization, Other)
  Sender: FDA-Public Use
  Company Number: KR-PURDUE-USA-2020-0174122

PATIENT
  Age: 46 Year
  Sex: Male

DRUGS (4)
  1. PROPRANOLOL HYDROCHLORIDE. [Concomitant]
     Active Substance: PROPRANOLOL HYDROCHLORIDE
     Indication: PAROXYSMAL AUTONOMIC INSTABILITY WITH DYSTONIA
     Dosage: 4 MG, Q12H
  2. NON-PMN MORPHINE SULFATE [Suspect]
     Active Substance: MORPHINE SULFATE
     Indication: PAROXYSMAL AUTONOMIC INSTABILITY WITH DYSTONIA
     Dosage: 1 MG, Q1H
     Route: 042
  3. CLONAZEPAM. [Concomitant]
     Active Substance: CLONAZEPAM
     Indication: PAROXYSMAL AUTONOMIC INSTABILITY WITH DYSTONIA
     Dosage: 0.25 MG, Q12H
  4. BROMOCRIPTINE [Concomitant]
     Active Substance: BROMOCRIPTINE
     Indication: PAROXYSMAL AUTONOMIC INSTABILITY WITH DYSTONIA
     Dosage: 1.43 MG, Q12H

REACTIONS (4)
  - Bradypnoea [Recovered/Resolved]
  - Hypotension [Recovered/Resolved]
  - Hypothermia [Recovered/Resolved]
  - Bradycardia [Recovered/Resolved]
